FAERS Safety Report 6747119-8 (Version None)
Quarter: 2010Q2

REPORT INFORMATION
  Report Type: 
  Country: None (occurrence: None)
  Receive Date: 20100528
  Receipt Date: 20100525
  Transmission Date: 20101027
  Serious: Yes (Death)
  Sender: FDA-Public Use
  Company Number: US-PFIZER INC-2010064016

PATIENT
  Sex: Male
  Weight: 95.238 kg

DRUGS (16)
  1. DALTEPARIN SODIUM [Suspect]
     Indication: PULMONARY EMBOLISM
     Dosage: 18000 IU, DAILY
     Route: 058
     Dates: start: 20091104, end: 20091202
  2. DALTEPARIN SODIUM [Suspect]
     Indication: DEEP VEIN THROMBOSIS
     Dosage: 15000 IU, DAILY
     Route: 058
     Dates: start: 20091203, end: 20091207
  3. DALTEPARIN SODIUM [Suspect]
     Dosage: 12500 IU, DAILY
     Route: 058
     Dates: start: 20091208
  4. PRILOSEC [Concomitant]
     Indication: GASTROOESOPHAGEAL REFLUX DISEASE
     Dosage: 20 MG, 1X/DAY
     Route: 048
     Dates: start: 20091012
  5. NORVASC [Concomitant]
     Indication: HYPERTENSION
     Dosage: 5 MG, 1X/DAY
     Route: 048
     Dates: start: 19970101, end: 20100108
  6. DETROL [Concomitant]
     Indication: URINARY INCONTINENCE
     Dosage: 4 MG, 1X/DAY
     Route: 048
     Dates: start: 19970101
  7. CELEBREX [Concomitant]
     Indication: ARTHRITIS
     Dosage: 200 MG, AS NEEDED
     Route: 048
     Dates: start: 19970101
  8. BACLOFEN [Concomitant]
     Indication: ARTHRITIS
     Dosage: UNK
     Route: 048
     Dates: start: 20080101, end: 20091030
  9. VALSARTAN [Concomitant]
     Indication: HYPERTENSION
     Dosage: 160 MG, 1X/DAY
     Route: 048
     Dates: start: 19970101, end: 20100108
  10. AVASTIN [Concomitant]
     Indication: CHEMOTHERAPY
     Dosage: 1000 MG, EVERY 2 WEEKS
     Route: 042
     Dates: start: 20091005
  11. OXALIPLATIN [Concomitant]
     Indication: CHEMOTHERAPY
     Dosage: 185 MG, EVERY 2 WEEKS
     Route: 042
     Dates: start: 20091005
  12. LEUCOVORIN CALCIUM [Concomitant]
     Indication: CHEMOTHERAPY
     Dosage: 430 MG, EVERY TWO WEEKS
     Route: 042
     Dates: start: 20091005
  13. FLUOROURACIL [Concomitant]
     Indication: CHEMOTHERAPY
     Dosage: 870 EVERY 2 WEEKS
     Route: 040
     Dates: start: 20091005
  14. FLUOROURACIL [Concomitant]
     Dosage: 1300 MG, EVERY 2 WEEKS
     Route: 041
     Dates: start: 20091005
  15. TOPROL-XL [Concomitant]
     Indication: HYPERTENSION
     Dosage: 25 MG, 1X/DAY
     Route: 048
     Dates: start: 20100130, end: 20100404
  16. TOPROL-XL [Concomitant]
     Dosage: 50 MG, 1X/DAY
     Route: 048
     Dates: start: 20100405

REACTIONS (2)
  - DISEASE PROGRESSION [None]
  - RECTAL CANCER METASTATIC [None]
